FAERS Safety Report 25766478 (Version 1)
Quarter: 2025Q3

REPORT INFORMATION
  Report Type: Spontaneous
  Country: EU (occurrence: EU)
  Receive Date: 20250905
  Receipt Date: 20250905
  Transmission Date: 20251021
  Serious: Yes (Hospitalization)
  Sender: ROCHE
  Company Number: None

PATIENT
  Age: 40 Year
  Sex: Female
  Weight: 49.8 kg

DRUGS (3)
  1. ALTEPLASE [Suspect]
     Active Substance: ALTEPLASE
     Indication: Product used for unknown indication
     Route: 042
     Dates: start: 20250805, end: 20250805
  2. HEPARIN SODIUM [Suspect]
     Active Substance: HEPARIN SODIUM
     Indication: Pulmonary embolism
     Route: 042
     Dates: start: 20250805, end: 20250810
  3. LOVENOX [Concomitant]
     Active Substance: ENOXAPARIN SODIUM
     Indication: Pulmonary embolism
     Dates: start: 20250810, end: 20250813

REACTIONS (2)
  - Epistaxis [Recovered/Resolved]
  - Blood loss anaemia [Recovering/Resolving]

NARRATIVE: CASE EVENT DATE: 20250806
